FAERS Safety Report 9749523 (Version 9)
Quarter: 2014Q1

REPORT INFORMATION
  Report Type: Spontaneous
  Country: IL (occurrence: IL)
  Receive Date: 20131212
  Receipt Date: 20140311
  Transmission Date: 20141002
  Serious: Yes (Other)
  Sender: FDA-Public Use
  Company Number: IL-009507513-1304ISR002241

PATIENT
  Age: 54 Year
  Sex: Male

DRUGS (4)
  1. VICTRELIS [Suspect]
     Indication: HEPATITIS C
     Dosage: 4 CAPSULE, TID
     Route: 048
     Dates: start: 20130401, end: 20140202
  2. COPEGUS [Suspect]
     Indication: HEPATITIS C
     Dosage: UNK
     Dates: end: 20140202
  3. PEGASYS [Suspect]
     Indication: HEPATITIS C
     Dosage: UNK
     Dates: end: 20140202
  4. RAMIPRIL [Concomitant]

REACTIONS (16)
  - Hypoacusis [Unknown]
  - Blood pressure increased [Unknown]
  - Dry eye [Unknown]
  - Chest pain [Unknown]
  - Pyrexia [Unknown]
  - Pyrexia [Recovering/Resolving]
  - Pyrexia [Unknown]
  - Asthenia [Unknown]
  - Pain [Unknown]
  - Neutrophil count decreased [Recovering/Resolving]
  - Transaminases increased [Not Recovered/Not Resolved]
  - Neutrophil count decreased [Recovering/Resolving]
  - Feeling abnormal [Unknown]
  - Pruritus [Recovering/Resolving]
  - Blood pressure increased [Unknown]
  - Inappropriate schedule of drug administration [Unknown]
